FAERS Safety Report 13939405 (Version 1)
Quarter: 2017Q3

REPORT INFORMATION
  Report Type: Spontaneous
  Country: IN (occurrence: IN)
  Receive Date: 20170906
  Receipt Date: 20170906
  Transmission Date: 20171127
  Serious: Yes (Other)
  Sender: FDA-Public Use
  Company Number: IN-ACCORD-058108

PATIENT
  Age: 28 Year
  Sex: Male

DRUGS (3)
  1. FLUOROURACIL. [Concomitant]
     Active Substance: FLUOROURACIL
     Indication: KERATINISING SQUAMOUS CELL CARCINOMA OF NASOPHARYNX
  2. PACLITAXEL/PACLITAXEL LIPOSOME [Concomitant]
     Indication: KERATINISING SQUAMOUS CELL CARCINOMA OF NASOPHARYNX
  3. CISPLATIN. [Suspect]
     Active Substance: CISPLATIN
     Indication: KERATINISING SQUAMOUS CELL CARCINOMA OF NASOPHARYNX

REACTIONS (1)
  - Vasculitis [Recovering/Resolving]
